FAERS Safety Report 6464849-6 (Version None)
Quarter: 2009Q4

REPORT INFORMATION
  Report Type: 
  Country: None (occurrence: None)
  Receive Date: 20091201
  Receipt Date: 20091127
  Transmission Date: 20100525
  Serious: Yes (Disabling, Other)
  Sender: FDA-Public Use
  Company Number: A0831215A

PATIENT
  Sex: Male
  Weight: 86 kg

DRUGS (11)
  1. ZANAMIVIR [Suspect]
     Indication: H1N1 INFLUENZA
     Route: 042
     Dates: start: 20091120, end: 20091124
  2. OSELTAMIVIR [Suspect]
     Indication: H1N1 INFLUENZA
     Dosage: 75MG TWICE PER DAY
     Route: 048
     Dates: start: 20091116, end: 20091120
  3. RANITIDINE [Suspect]
     Indication: PROPHYLAXIS
     Dosage: 50MG PER DAY
     Route: 042
     Dates: start: 20091116
  4. METOCLOPRAMIDE [Suspect]
     Indication: GASTRIC DISORDER
     Dosage: 5MG FOUR TIMES PER DAY
     Route: 042
     Dates: start: 20091118
  5. HYDROMORPHONE HCL [Suspect]
     Indication: SEDATION
     Dosage: 5MG TWENTY FOUR TIMES PER DAY
     Route: 042
     Dates: start: 20091118, end: 20091126
  6. PROPOFOL [Suspect]
     Indication: SEDATION
     Route: 042
     Dates: start: 20091116, end: 20091126
  7. CIPROFLOXACIN [Suspect]
     Indication: PNEUMONIA
     Dosage: 400MG TWICE PER DAY
     Route: 042
     Dates: start: 20091116, end: 20091122
  8. CEFOTAXIME [Suspect]
     Indication: PNEUMONIA
     Dosage: 1G TWICE PER DAY
     Route: 042
     Dates: start: 20091116, end: 20091122
  9. HEPARIN [Suspect]
     Dates: start: 20091116
  10. MECHANICAL VENTILATION [Concomitant]
  11. PSYCHOTROPIC DRUGS [Concomitant]

REACTIONS (3)
  - AGITATION [None]
  - DELIRIUM [None]
  - RASH [None]
